FAERS Safety Report 17232985 (Version 1)
Quarter: 2020Q1

REPORT INFORMATION
  Report Type: Spontaneous
  Country: JP (occurrence: JP)
  Receive Date: 20200103
  Receipt Date: 20200103
  Transmission Date: 20200409
  Serious: Yes (Hospitalization, Other)
  Sender: FDA-Public Use
  Company Number: JP-NOVOPROD-704679

PATIENT
  Age: 78 Year
  Sex: Male

DRUGS (1)
  1. NOVOMIX [Suspect]
     Active Substance: INSULIN ASPART
     Indication: TYPE 2 DIABETES MELLITUS
     Dosage: UNK(IN THE MORNING)
     Route: 058

REACTIONS (2)
  - Hypoglycaemia [Unknown]
  - Adrenocortical insufficiency acute [Unknown]
